FAERS Safety Report 9656822 (Version 1)
Quarter: 2013Q4

REPORT INFORMATION
  Report Type: Spontaneous
  Country: CH (occurrence: None)
  Receive Date: 20131028
  Receipt Date: 20131028
  Transmission Date: 20140711
  Serious: Yes (Hospitalization)
  Sender: FDA-Public Use
  Company Number: 20130549

PATIENT
  Age: 32 Year
  Sex: Female

DRUGS (4)
  1. FERINJECT [Suspect]
     Indication: IRON DEFICIENCY ANAEMIA
     Route: 042
     Dates: start: 20130906, end: 20130906
  2. LEVOTHYROX (LEVOTHYROXINE SODIUM) INFUSION [Concomitant]
  3. NOVORAPID (INSULIN ASPART) [Concomitant]
  4. SOLUPRED [Suspect]

REACTIONS (3)
  - Urticaria [None]
  - Chest pain [None]
  - Laryngeal oedema [None]
